FAERS Safety Report 9315067 (Version 1)
Quarter: 2013Q2

REPORT INFORMATION
  Report Type: Spontaneous
  Country: FR (occurrence: FR)
  Receive Date: 20130529
  Receipt Date: 20130529
  Transmission Date: 20140414
  Serious: Yes (Death, Hospitalization, Other)
  Sender: FDA-Public Use
  Company Number: FR-ELI_LILLY_AND_COMPANY-FR201305006946

PATIENT
  Age: 76 Year
  Sex: Male

DRUGS (7)
  1. ALIMTA [Suspect]
     Dosage: UNK UNK, UNKNOWN
     Route: 042
     Dates: start: 20121203, end: 20130215
  2. NOVONORM [Concomitant]
     Indication: DIABETES MELLITUS
     Dosage: UNK, UNKNOWN
     Route: 048
     Dates: start: 20130125
  3. KARDEGIC [Concomitant]
     Dosage: 75 MG, QD
     Route: 048
     Dates: start: 20130216
  4. EPREX [Concomitant]
     Dosage: 4000 IU, WEEKLY (1/W)
     Route: 058
  5. SOLUPRED                           /00016201/ [Concomitant]
     Dosage: 20 MG, BID
     Route: 048
  6. FOLIC ACID [Concomitant]
     Dosage: 0.8 MG, QD
     Route: 048
  7. STABLON [Concomitant]
     Dosage: 12.5 MG, QD
     Route: 048

REACTIONS (12)
  - Oxygen saturation decreased [Fatal]
  - Pulmonary congestion [Fatal]
  - Hypoxia [Unknown]
  - General physical condition abnormal [Unknown]
  - Staphylococcal infection [Unknown]
  - Pancytopenia [Recovering/Resolving]
  - Anaemia [Unknown]
  - Bronchitis viral [Unknown]
  - Petechiae [Unknown]
  - Haematoma [Unknown]
  - Tumour associated fever [Unknown]
  - Infection [Unknown]
